FAERS Safety Report 12848938 (Version 1)
Quarter: 2016Q4

REPORT INFORMATION
  Report Type: Spontaneous
  Country: AT (occurrence: AT)
  Receive Date: 20161014
  Receipt Date: 20161014
  Transmission Date: 20170207
  Serious: Yes (Other)
  Sender: FDA-Public Use
  Company Number: AT-AMGEN-AUTSP2016107178

PATIENT
  Age: 72 Year
  Sex: Female
  Weight: 55 kg

DRUGS (3)
  1. WELLBUTRIN [Concomitant]
     Active Substance: BUPROPION HYDROCHLORIDE
     Indication: DEPRESSION
     Dosage: 150 MG, EVERY SECOND DAY
     Dates: start: 2014
  2. PROLIA [Suspect]
     Active Substance: DENOSUMAB
     Indication: OSTEOPOROSIS
     Dosage: UNK
     Route: 058
     Dates: start: 20160726
  3. TRITTICO [Concomitant]
     Active Substance: TRAZODONE HYDROCHLORIDE
     Indication: DEPRESSION
     Dosage: 50 MG, QD
     Dates: start: 2014

REACTIONS (3)
  - Oral mucosal blistering [Recovering/Resolving]
  - Swelling [Recovering/Resolving]
  - Faeces soft [Recovering/Resolving]

NARRATIVE: CASE EVENT DATE: 201608
